FAERS Safety Report 9012711 (Version 3)
Quarter: 2014Q1

REPORT INFORMATION
  Report Type: Spontaneous
  Country: US (occurrence: US)
  Receive Date: 20130114
  Receipt Date: 20140313
  Transmission Date: 20141002
  Serious: Yes (Hospitalization, Other)
  Sender: FDA-Public Use
  Company Number: US-B.I. PHARMACEUTICALS,INC./RIDGEFIELD-2013-BI-00475BP

PATIENT
  Sex: Male
  Weight: 102.06 kg

DRUGS (5)
  1. PRADAXA [Suspect]
     Indication: ANTICOAGULANT THERAPY
     Dosage: 300 MG
     Route: 065
     Dates: start: 20120807, end: 20120907
  2. PRADAXA [Suspect]
     Indication: ATRIAL FIBRILLATION
  3. FLECAINIDE [Concomitant]
     Dosage: 200 MG
     Route: 048
  4. METOPROLOL TARTRATE [Concomitant]
     Dosage: 25 MG
     Route: 048
  5. LAMISIL [Concomitant]
     Dosage: 250 MG
     Route: 065

REACTIONS (5)
  - Clostridium difficile colitis [Unknown]
  - Appendicitis [Unknown]
  - Post procedural haemorrhage [Unknown]
  - Peritoneal haemorrhage [Unknown]
  - Small intestinal obstruction [Recovered/Resolved]
